FAERS Safety Report 20507504 (Version 1)
Quarter: 2022Q1

REPORT INFORMATION
  Report Type: Spontaneous
  Country: US (occurrence: None)
  Receive Date: 20220223
  Receipt Date: 20220223
  Transmission Date: 20220423
  Serious: No
  Sender: FDA-Public Use
  Company Number: 2022A064461

PATIENT
  Age: 15 Year
  Sex: Male
  Weight: 60.1 kg

DRUGS (3)
  1. BUDESONIDE [Suspect]
     Active Substance: BUDESONIDE
     Route: 055
  2. NEXIUM [Suspect]
     Active Substance: ESOMEPRAZOLE MAGNESIUM
     Route: 042
  3. DUPIXENT [Suspect]
     Active Substance: DUPILUMAB
     Indication: Eosinophilic oesophagitis
     Dosage: 300.0MG UNKNOWN
     Route: 058
     Dates: start: 20200124, end: 20210118

REACTIONS (6)
  - Oesophagitis [Not Recovered/Not Resolved]
  - Condition aggravated [Unknown]
  - Dysphagia [Unknown]
  - Abdominal pain [Unknown]
  - Tooth impacted [Unknown]
  - Off label use [Unknown]

NARRATIVE: CASE EVENT DATE: 20180101
